FAERS Safety Report 4434363-8 (Version None)
Quarter: 2004Q3

REPORT INFORMATION
  Report Type: 
  Country: None (occurrence: None)
  Receive Date: 20040825
  Receipt Date: 20040811
  Transmission Date: 20050211
  Serious: Yes (Other)
  Sender: FDA-Public Use
  Company Number: USA040258500

PATIENT
  Age: 75 Year
  Sex: Female

DRUGS (7)
  1. FORTEO [Suspect]
     Indication: OSTEOPOROSIS
     Dosage: 20 UG DAY
     Dates: start: 20030801, end: 20040201
  2. FOSAMAX [Concomitant]
  3. VITAMIN D [Concomitant]
  4. CALCIUM [Concomitant]
  5. PRINIVIL [Concomitant]
  6. ASPIRIN [Concomitant]
  7. MULTI-VITAMIN [Concomitant]

REACTIONS (5)
  - FEELING ABNORMAL [None]
  - MULTIPLE MYELOMA [None]
  - PAIN [None]
  - PROTEIN TOTAL DECREASED [None]
  - THORACIC VERTEBRAL FRACTURE [None]
